FAERS Safety Report 13471163 (Version 2)
Quarter: 2019Q3

REPORT INFORMATION
  Report Type: Spontaneous
  Country: CA (occurrence: CA)
  Receive Date: 20170424
  Receipt Date: 20190730
  Transmission Date: 20191004
  Serious: Yes (Hospitalization, Other)
  Sender: FDA-Public Use
  Company Number: CA-ROCHE-1922256

PATIENT
  Sex: Male

DRUGS (3)
  1. XOLAIR [Suspect]
     Active Substance: OMALIZUMAB
     Indication: ASTHMA
     Route: 058
     Dates: start: 20070615
  2. XOLAIR [Suspect]
     Active Substance: OMALIZUMAB
     Route: 058
  3. XOLAIR [Suspect]
     Active Substance: OMALIZUMAB
     Route: 058

REACTIONS (18)
  - Dyspnoea exertional [Unknown]
  - Rib fracture [Unknown]
  - Pulmonary function test decreased [Unknown]
  - Myocardial infarction [Unknown]
  - Inappropriate schedule of product administration [Unknown]
  - Dyspnoea [Unknown]
  - Asthma [Unknown]
  - Productive cough [Unknown]
  - Sensitivity to weather change [Unknown]
  - Malaise [Unknown]
  - Bronchitis chronic [Unknown]
  - Weight decreased [Unknown]
  - Atelectasis [Unknown]
  - Pneumonia [Unknown]
  - Cough [Unknown]
  - Ejection fraction decreased [Unknown]
  - Wheezing [Unknown]
  - Cardiac failure congestive [Unknown]

NARRATIVE: CASE EVENT DATE: 2010
